FAERS Safety Report 5907737-3 (Version None)
Quarter: 2008Q4

REPORT INFORMATION
  Report Type: 
  Country: None (occurrence: None)
  Receive Date: 20081003
  Receipt Date: 20080922
  Transmission Date: 20090506
  Serious: Yes (Other)
  Sender: FDA-Public Use
  Company Number: US-BAXTER-2008BH010073

PATIENT
  Sex: Female

DRUGS (3)
  1. DOBUTAMINE HYDROCHLORIDE [Suspect]
     Indication: CARDIAC OPERATION
     Dosage: DOSE UNIT:UNKNOWN
     Route: 042
     Dates: start: 20080916, end: 20080916
  2. LEVOPHED [Concomitant]
     Indication: CARDIAC OPERATION
     Dosage: DOSE UNIT:UNKNOWN
     Route: 042
     Dates: start: 20080916, end: 20080916
  3. INSULIN [Concomitant]
     Indication: CARDIAC OPERATION
     Route: 042
     Dates: start: 20080916, end: 20080916

REACTIONS (2)
  - BLOOD PRESSURE FLUCTUATION [None]
  - DEVICE MALFUNCTION [None]
